FAERS Safety Report 5407366-4 (Version None)
Quarter: 2007Q3

REPORT INFORMATION
  Report Type: 
  Country: None (occurrence: None)
  Receive Date: 20070731
  Receipt Date: 20070719
  Transmission Date: 20080115
  Serious: Yes (Other)
  Sender: FDA-Public Use
  Company Number: CHNY2007DE02608

PATIENT
  Sex: Female

DRUGS (1)
  1. NICOTINE [Suspect]
     Indication: SMOKING CESSATION THERAPY
     Dosage: 21 MG, QD, TRANSDERMAL
     Route: 062
     Dates: start: 20061101, end: 20061101

REACTIONS (4)
  - DRUG INTOLERANCE [None]
  - HYPERHIDROSIS [None]
  - NIGHTMARE [None]
  - PALPITATIONS [None]
